FAERS Safety Report 20751003 (Version 1)
Quarter: 2022Q2

REPORT INFORMATION
  Report Type: Report from Study
  Country: IN (occurrence: None)
  Receive Date: 20220426
  Receipt Date: 20220426
  Transmission Date: 20220720
  Serious: Yes (Hospitalization)
  Sender: FDA-Public Use
  Company Number: IN-Eisai Pharmaceuticals India Pvt. Ltd.-EC-2022-113352

PATIENT
  Age: 56 Year
  Sex: Female

DRUGS (1)
  1. HALAVEN [Suspect]
     Active Substance: ERIBULIN MESYLATE
     Indication: Breast cancer
     Route: 042
     Dates: start: 202112, end: 202204

REACTIONS (4)
  - Hypophagia [Unknown]
  - Urinary tract infection [Unknown]
  - Mouth ulceration [Unknown]
  - Asthenia [Unknown]

NARRATIVE: CASE EVENT DATE: 20220401
